FAERS Safety Report 4340561-4 (Version None)
Quarter: 2004Q2

REPORT INFORMATION
  Report Type: 
  Country: None (occurrence: None)
  Receive Date: 20040416
  Receipt Date: 20040416
  Transmission Date: 20050107
  Serious: Yes (Other)
  Sender: FDA-Public Use
  Company Number: None

PATIENT
  Sex: Female

DRUGS (1)
  1. TOPAMAX [Suspect]
     Indication: MIGRAINE
     Dosage: 25 MG PO QD OR BID
     Route: 048

REACTIONS (4)
  - BLINDNESS [None]
  - EYE PAIN [None]
  - EYE SWELLING [None]
  - VISION BLURRED [None]
